FAERS Safety Report 17570115 (Version 4)
Quarter: 2021Q3

REPORT INFORMATION
  Report Type: Report from Study
  Country: BR (occurrence: BR)
  Receive Date: 20200323
  Receipt Date: 20210727
  Transmission Date: 20211014
  Serious: Yes (Death, Other)
  Sender: FDA-Public Use
  Company Number: BR-BIOGEN-2020BI00851729

PATIENT
  Sex: Male

DRUGS (6)
  1. AVONEX PEN [Suspect]
     Active Substance: INTERFERON BETA-1A
  2. AVONEX PEN [Suspect]
     Active Substance: INTERFERON BETA-1A
  3. HYDROXYZINE [Concomitant]
     Active Substance: HYDROXYZINE HYDROCHLORIDE
     Indication: PRODUCT USED FOR UNKNOWN INDICATION
     Route: 065
  4. AVONEX PEN [Suspect]
     Active Substance: INTERFERON BETA-1A
     Indication: MULTIPLE SCLEROSIS
     Route: 030
     Dates: start: 20141015, end: 20210330
  5. AVONEX PEN [Suspect]
     Active Substance: INTERFERON BETA-1A
  6. DORENE [Concomitant]
     Active Substance: PREGABALIN
     Indication: PRODUCT USED FOR UNKNOWN INDICATION
     Route: 065

REACTIONS (14)
  - Multiple sclerosis relapse [Unknown]
  - Tachycardia [Unknown]
  - Flushing [Not Recovered/Not Resolved]
  - Cardiac arrest [Fatal]
  - Pneumonia [Fatal]
  - Syncope [Recovered/Resolved]
  - Dyspnoea [Not Recovered/Not Resolved]
  - Urinary tract infection [Fatal]
  - Increased bronchial secretion [Unknown]
  - Pyrexia [Fatal]
  - Peripheral paralysis [Unknown]
  - Renal disorder [Fatal]
  - Multiple sclerosis [Fatal]
  - Pain [Unknown]

NARRATIVE: CASE EVENT DATE: 2015
